FAERS Safety Report 7216036-1 (Version None)
Quarter: 2011Q1

REPORT INFORMATION
  Report Type: 
  Country: None (occurrence: None)
  Receive Date: 20110107
  Receipt Date: 20101228
  Transmission Date: 20110831
  Serious: Yes (Hospitalization)
  Sender: FDA-Public Use
  Company Number: FR-ELI_LILLY_AND_COMPANY-FR201006004910

PATIENT
  Age: 80 Year
  Sex: Female

DRUGS (5)
  1. OROCAL D3 [Concomitant]
     Indication: OSTEOPOROSIS
     Route: 048
  2. FORTEO [Suspect]
     Indication: OSTEOPOROSIS
     Dosage: 20 UG, DAILY (1/D)
     Route: 058
     Dates: start: 20100414
  3. MORPHINE SULFATE [Concomitant]
     Indication: ARTHRALGIA
     Route: 048
  4. DOLIPRANE [Concomitant]
     Indication: ARTHRALGIA
     Dosage: 3 G, DAILY (1/D)
     Route: 048
  5. CORTANCYL [Concomitant]
     Indication: POLYMYALGIA RHEUMATICA
     Route: 048

REACTIONS (2)
  - SPINAL FRACTURE [None]
  - FALL [None]
